FAERS Safety Report 21556230 (Version 1)
Quarter: 2022Q4

REPORT INFORMATION
  Report Type: Spontaneous
  Country: US (occurrence: US)
  Receive Date: 20221104
  Receipt Date: 20221104
  Transmission Date: 20230113
  Serious: Yes (Other)
  Sender: FDA-Public Use
  Company Number: US-BAYER-2022P019961

PATIENT
  Age: 15 Month
  Sex: Male

DRUGS (3)
  1. ASPIRIN [Interacting]
     Active Substance: ASPIRIN
     Indication: Anticoagulant therapy
     Dosage: UNK
  2. BIVALIRUDIN [Interacting]
     Active Substance: BIVALIRUDIN
     Indication: Anticoagulant therapy
  3. HEPARIN [Interacting]
     Active Substance: HEPARIN SODIUM
     Indication: Anticoagulant therapy
     Dosage: UNK
     Route: 041

REACTIONS (3)
  - Subdural haematoma [None]
  - Off label use [None]
  - Labelled drug-drug interaction medication error [None]
